FAERS Safety Report 19890644 (Version 1)
Quarter: 2021Q3

REPORT INFORMATION
  Report Type: Spontaneous
  Country: SK (occurrence: SK)
  Receive Date: 20210928
  Receipt Date: 20210928
  Transmission Date: 20211014
  Serious: Yes (Other)
  Sender: FDA-Public Use
  Company Number: SK-SA-2021SA317538

PATIENT
  Age: 33 Year
  Sex: Male

DRUGS (1)
  1. DUPILUMAB [Suspect]
     Active Substance: DUPILUMAB
     Indication: DERMATITIS ATOPIC
     Route: 058

REACTIONS (4)
  - Glaucoma [Unknown]
  - Congenital optic nerve anomaly [Unknown]
  - Conjunctivitis allergic [Unknown]
  - Myopia [Unknown]

NARRATIVE: CASE EVENT DATE: 2016
